FAERS Safety Report 8300567-7 (Version None)
Quarter: 2012Q2

REPORT INFORMATION
  Report Type: 
  Country: None (occurrence: None)
  Receive Date: 20120418
  Receipt Date: 20120418
  Transmission Date: 20120825
  Serious: Yes (Other)
  Sender: FDA-Public Use
  Company Number: None

PATIENT
  Age: 55 Year
  Sex: Female

DRUGS (2)
  1. TRIAMTERENE AND HYDROCHLOROTHIAZIDE [Suspect]
     Dosage: 1 CAPSULE DAILY
     Dates: start: 20120405
  2. TRIAMTERENE AND HYDROCHLOROTHIAZIDE [Suspect]
     Dosage: 1 CAPSULE DAILY
     Dates: start: 20120407

REACTIONS (3)
  - PRODUCT FORMULATION ISSUE [None]
  - PALPITATIONS [None]
  - FLUSHING [None]
